FAERS Safety Report 12081673 (Version 1)
Quarter: 2016Q1

REPORT INFORMATION
  Report Type: Spontaneous
  Country: US (occurrence: US)
  Receive Date: 20160216
  Receipt Date: 20160216
  Transmission Date: 20160526
  Serious: Yes (Hospitalization)
  Sender: FDA-Public Use
  Company Number: US-CORCEPT THERAPEUTICS INC.-US-2016CRT000034

PATIENT
  Sex: Female

DRUGS (2)
  1. KORLYM [Suspect]
     Active Substance: MIFEPRISTONE
     Indication: CUSHING^S SYNDROME
     Dosage: 1 DF, QD
     Route: 048
  2. KORLYM [Suspect]
     Active Substance: MIFEPRISTONE
     Dosage: 2 DF, QD
     Route: 048

REACTIONS (2)
  - Pulmonary hypertension [Not Recovered/Not Resolved]
  - Ill-defined disorder [Not Recovered/Not Resolved]
